FAERS Safety Report 4673090-9 (Version None)
Quarter: 2005Q2

REPORT INFORMATION
  Report Type: 
  Country: None (occurrence: None)
  Receive Date: 20050524
  Receipt Date: 20050524
  Transmission Date: 20051028
  Serious: Yes (Life-Threatening, Hospitalization, Other)
  Sender: FDA-Public Use
  Company Number: None

PATIENT
  Age: 20 Year
  Sex: Female
  Weight: 48.9885 kg

DRUGS (2)
  1. EX-LAX  LAXATIVES  EXTRA + ULTRA STRAIGNTH [Suspect]
     Indication: ANOREXIA
     Dosage: 30-50 PER DAY ORAL
     Route: 048
     Dates: start: 20020101, end: 20050519
  2. DIET PILLS  ANY ALL [Suspect]
     Indication: ANOREXIA
     Dosage: 30-50 PER DAY ORAL
     Route: 048
     Dates: start: 20020101, end: 20050519

REACTIONS (3)
  - CACHEXIA [None]
  - DRUG ABUSER [None]
  - THERAPY NON-RESPONDER [None]
